FAERS Safety Report 9435918 (Version 2)
Quarter: 2013Q3

REPORT INFORMATION
  Report Type: Spontaneous
  Country: US (occurrence: US)
  Receive Date: 20130801
  Receipt Date: 20130916
  Transmission Date: 20140515
  Serious: Yes (Other)
  Sender: FDA-Public Use
  Company Number: US-TEVA-422568USA

PATIENT
  Age: 22 Year
  Sex: Female
  Weight: 75.36 kg

DRUGS (2)
  1. PARAGARD 380A [Suspect]
     Indication: CONTRACEPTION
     Route: 015
     Dates: start: 20130627, end: 20130829
  2. MULTIVITAMIN [Concomitant]
     Indication: VITAMIN SUPPLEMENTATION

REACTIONS (3)
  - Device dislocation [Recovered/Resolved]
  - Menstruation delayed [Recovered/Resolved]
  - Dyspareunia [Unknown]
